FAERS Safety Report 5657578-X (Version None)
Quarter: 2008Q1

REPORT INFORMATION
  Report Type: 
  Country: None (occurrence: None)
  Receive Date: 20080310
  Receipt Date: 20080227
  Transmission Date: 20080703
  Serious: Yes (Hospitalization, Other)
  Sender: FDA-Public Use
  Company Number: PHHY2008BE02353

PATIENT
  Age: 74 Year

DRUGS (9)
  1. ALDACTONE [Concomitant]
     Dosage: 50 MG, QD
  2. ASAFLOW [Concomitant]
     Dosage: 160 MG, QD
  3. BURINEX [Concomitant]
     Dosage: 5 MG 1/2 DAILY
  4. COVERSYL [Concomitant]
     Dosage: 4 MG 1/2 DAILY
  5. CARVEDILOL [Concomitant]
     Dosage: 6.25 MG 2 X 1/2 /DAY
  6. LIPITOR [Concomitant]
     Dosage: 20 MG, QD
  7. PLAVIX [Concomitant]
     Dosage: 75 MG, QD
  8. ZANTAC [Concomitant]
     Dosage: 300 MG, QD
  9. TASIGNA [Suspect]
     Indication: CHRONIC MYELOID LEUKAEMIA
     Dosage: 400 MG, BID

REACTIONS (14)
  - ACUTE CORONARY SYNDROME [None]
  - ALANINE AMINOTRANSFERASE INCREASED [None]
  - BLOOD BILIRUBIN INCREASED [None]
  - BLOOD LACTATE DEHYDROGENASE INCREASED [None]
  - C-REACTIVE PROTEIN INCREASED [None]
  - CORONARY ANGIOPLASTY [None]
  - CORONARY ARTERIAL STENT INSERTION [None]
  - GAMMA-GLUTAMYLTRANSFERASE INCREASED [None]
  - HAEMATOCRIT DECREASED [None]
  - HAEMOGLOBIN DECREASED [None]
  - PLATELET DISORDER [None]
  - PNEUMONIA [None]
  - RED BLOOD CELL COUNT DECREASED [None]
  - WHITE BLOOD CELL COUNT INCREASED [None]
